FAERS Safety Report 23574877 (Version 1)
Quarter: 2024Q1

REPORT INFORMATION
  Report Type: Spontaneous
  Country: US (occurrence: US)
  Receive Date: 20240228
  Receipt Date: 20240228
  Transmission Date: 20240409
  Serious: No
  Sender: FDA-Public Use
  Company Number: US-Westminster Pharmaceuticals, LLC-2153768

PATIENT
  Sex: Female

DRUGS (1)
  1. HYDROQUINONE [Suspect]
     Active Substance: HYDROQUINONE
     Route: 061
     Dates: start: 20240223, end: 20240225

REACTIONS (2)
  - Erythema [Recovered/Resolved]
  - Pruritus [Recovered/Resolved]

NARRATIVE: CASE EVENT DATE: 20240223
